FAERS Safety Report 4359572-8 (Version None)
Quarter: 2004Q2

REPORT INFORMATION
  Report Type: 
  Country: None (occurrence: None)
  Receive Date: 20040513
  Receipt Date: 20040428
  Transmission Date: 20050107
  Serious: Yes (Hospitalization)
  Sender: FDA-Public Use
  Company Number: A03200401391

PATIENT
  Sex: Female

DRUGS (7)
  1. ELOXATIN [Suspect]
     Dosage: 180 MG Q3W - INTRAVENOUS NOS
     Route: 042
     Dates: start: 20040414, end: 20040414
  2. FLUOROURACIL [Concomitant]
  3. LEUCOVORIN CALCIUM [Concomitant]
  4. DEXAMETHASONE [Concomitant]
  5. RANITIDINE HYDROCHLORIDE [Concomitant]
  6. DIPHENHYDRAMINE HCL [Concomitant]
  7. PALONOSETRON [Concomitant]

REACTIONS (3)
  - BLISTER [None]
  - GOUT [None]
  - SKIN NECROSIS [None]
